FAERS Safety Report 8407762-7 (Version None)
Quarter: 2012Q2

REPORT INFORMATION
  Report Type: 
  Country: None (occurrence: None)
  Receive Date: 20120604
  Receipt Date: 20120529
  Transmission Date: 20120825
  Serious: Yes (Congenital Anomaly)
  Sender: FDA-Public Use
  Company Number: US-GLAXOSMITHKLINE-A0979815A

PATIENT
  Sex: Female

DRUGS (5)
  1. TOPAMAX [Concomitant]
     Dosage: 100MG TWICE PER DAY
     Route: 064
     Dates: end: 20051101
  2. EXCEDRIN (MIGRAINE) [Concomitant]
  3. PAXIL CR [Suspect]
     Indication: BIPOLAR DISORDER
     Dosage: 50MG PER DAY
     Route: 064
     Dates: end: 20051101
  4. ACETAMINOPHEN [Concomitant]
  5. CLONIDINE [Concomitant]

REACTIONS (4)
  - FOETAL EXPOSURE DURING PREGNANCY [None]
  - ATRIAL SEPTAL DEFECT [None]
  - PATENT DUCTUS ARTERIOSUS [None]
  - VENTRICULAR SEPTAL DEFECT [None]
